FAERS Safety Report 8258948-6 (Version None)
Quarter: 2012Q2

REPORT INFORMATION
  Report Type: 
  Country: None (occurrence: None)
  Receive Date: 20120404
  Receipt Date: 20120326
  Transmission Date: 20120825
  Serious: Yes (Other)
  Sender: FDA-Public Use
  Company Number: US-ASTRAZENECA-2012SE20215

PATIENT
  Age: 22501 Day
  Sex: Female
  Weight: 79.4 kg

DRUGS (3)
  1. IBUPROFEN (ADVIL) [Concomitant]
     Indication: HEADACHE
     Route: 048
  2. PULMICORT FLEXHALER [Suspect]
     Indication: ASTHMA
     Route: 055
  3. ALLEGRA [Concomitant]
     Indication: MULTIPLE ALLERGIES
     Dosage: AS REQUIRED
     Route: 048

REACTIONS (6)
  - CIRCUMSTANCE OR INFORMATION CAPABLE OF LEADING TO MEDICATION ERROR [None]
  - CONCUSSION [None]
  - FALL [None]
  - DYSPNOEA [None]
  - EUPHORIC MOOD [None]
  - HEADACHE [None]
